FAERS Safety Report 5940719-4 (Version None)
Quarter: 2008Q4

REPORT INFORMATION
  Report Type: 
  Country: None (occurrence: None)
  Receive Date: 20081104
  Receipt Date: 20081027
  Transmission Date: 20090506
  Serious: Yes (Hospitalization)
  Sender: FDA-Public Use
  Company Number: JP-SANOFI-SYNTHELABO-F01200801649

PATIENT
  Age: 61 Year
  Sex: Female

DRUGS (6)
  1. MUCOSTA [Concomitant]
     Dosage: UNK
  2. RABEPRAZOLE SODIUM [Concomitant]
     Dosage: UNK
  3. XELODA [Suspect]
     Route: 048
     Dates: start: 20080829, end: 20080911
  4. FLUOROURACIL [Suspect]
     Dosage: UNK
     Route: 042
     Dates: start: 20080801, end: 20080801
  5. ELPLAT [Suspect]
     Indication: COLON CANCER
     Dosage: UNK
     Route: 041
     Dates: start: 20080807, end: 20080807
  6. LEUCOVORIN CALCIUM [Suspect]
     Dosage: UNK
     Route: 041
     Dates: start: 20080801, end: 20080801

REACTIONS (1)
  - DUODENAL ULCER PERFORATION [None]
